FAERS Safety Report 16219864 (Version 1)
Quarter: 2019Q2

REPORT INFORMATION
  Report Type: Spontaneous
  Country: RS (occurrence: RS)
  Receive Date: 20190420
  Receipt Date: 20190420
  Transmission Date: 20190711
  Serious: Yes (Other)
  Sender: FDA-Public Use
  Company Number: RS-ACCORD-122099

PATIENT
  Sex: Female

DRUGS (4)
  1. DOXORUBICIN [Suspect]
     Active Substance: DOXORUBICIN
     Indication: OVARIAN EPITHELIAL CANCER STAGE III
     Dates: start: 201508
  2. BEVACIZUMAB. [Concomitant]
     Active Substance: BEVACIZUMAB
     Indication: OVARIAN EPITHELIAL CANCER STAGE III
     Dates: start: 201207
  3. CISPLATIN. [Suspect]
     Active Substance: CISPLATIN
     Indication: OVARIAN EPITHELIAL CANCER STAGE III
     Dates: start: 201508
  4. GEMCITABINE/GEMCITABINE HYDROCHLORIDE [Suspect]
     Active Substance: GEMCITABINE\GEMCITABINE HYDROCHLORIDE
     Indication: OVARIAN EPITHELIAL CANCER STAGE III
     Dates: start: 201207

REACTIONS (2)
  - Haematotoxicity [Unknown]
  - Toxicity to various agents [Unknown]
